FAERS Safety Report 15963391 (Version 1)
Quarter: 2019Q1

REPORT INFORMATION
  Report Type: Spontaneous
  Country: US (occurrence: US)
  Receive Date: 20190214
  Receipt Date: 20190214
  Transmission Date: 20190417
  Serious: No
  Sender: FDA-Public Use
  Company Number: US-ALLERGAN-1805524US

PATIENT
  Sex: Male

DRUGS (2)
  1. OZURDEX [Suspect]
     Active Substance: DEXAMETHASONE
     Indication: CATARACT OPERATION
     Dosage: 0.7 MG, SINGLE
     Route: 031
     Dates: start: 20180125, end: 20180125
  2. AVASTIN                            /00848101/ [Concomitant]
     Active Substance: SIMVASTATIN
     Indication: PRODUCT USED FOR UNKNOWN INDICATION
     Dosage: UNK
     Route: 065

REACTIONS (3)
  - Complication of device insertion [Not Recovered/Not Resolved]
  - Off label use [Unknown]
  - Product administered at inappropriate site [Unknown]
